FAERS Safety Report 15306094 (Version 1)
Quarter: 2018Q3

REPORT INFORMATION
  Report Type: Spontaneous
  Country: JP (occurrence: JP)
  Receive Date: 20180822
  Receipt Date: 20180822
  Transmission Date: 20181010
  Serious: Yes (Other)
  Sender: FDA-Public Use
  Company Number: JP-ALKEM LABORATORIES LIMITED-JP-ALKEM-2018-06687

PATIENT
  Age: 64 Year
  Sex: Male

DRUGS (1)
  1. LINEZOLID. [Suspect]
     Active Substance: LINEZOLID
     Indication: STAPHYLOCOCCAL INFECTION
     Dosage: 600 MG, EVERY 12 HOURS
     Route: 042

REACTIONS (3)
  - Drug level increased [Unknown]
  - Pancytopenia [Unknown]
  - Hepatic function abnormal [Recovered/Resolved]
